FAERS Safety Report 9312386 (Version 1)
Quarter: 2013Q2

REPORT INFORMATION
  Report Type: Spontaneous
  Country: US (occurrence: US)
  Receive Date: 20130528
  Receipt Date: 20130528
  Transmission Date: 20140414
  Serious: Yes (Hospitalization)
  Sender: FDA-Public Use
  Company Number: US-BAYER-2013-063397

PATIENT
  Age: 41 Year
  Sex: Female

DRUGS (2)
  1. BETASERON [Suspect]
  2. BETASERON [Suspect]
     Dosage: 0.25 MG, QOD

REACTIONS (5)
  - Fluid overload [None]
  - Weight increased [None]
  - Multiple sclerosis relapse [None]
  - Drug dose omission [None]
  - Oedema peripheral [None]
